FAERS Safety Report 24134170 (Version 3)
Quarter: 2024Q4

REPORT INFORMATION
  Report Type: Spontaneous
  Country: DE (occurrence: DE)
  Receive Date: 20240724
  Receipt Date: 20241008
  Transmission Date: 20250114
  Serious: Yes (Hospitalization, Other)
  Sender: BIOGEN
  Company Number: DE-BIOGEN-2024BI01270616

PATIENT
  Age: 52 Year
  Sex: Female
  Weight: 102 kg

DRUGS (4)
  1. TOFERSEN [Suspect]
     Active Substance: TOFERSEN
     Indication: Amyotrophic lateral sclerosis
     Route: 050
     Dates: start: 20240610
  2. ESCITALOPRAM [Concomitant]
     Active Substance: ESCITALOPRAM OXALATE
     Indication: Product used for unknown indication
     Route: 050
  3. PREGABALIN [Concomitant]
     Active Substance: PREGABALIN
     Indication: Neuralgia
     Route: 050
  4. RILUZOL [Concomitant]
     Indication: Amyotrophic lateral sclerosis
     Route: 050

REACTIONS (7)
  - Post lumbar puncture syndrome [Unknown]
  - CSF protein increased [Recovered/Resolved]
  - CSF cell count increased [Recovered/Resolved]
  - Procedural failure [Unknown]
  - Pleocytosis [Recovered/Resolved]
  - Pain [Recovered/Resolved]
  - Radiculopathy [Recovered/Resolved]

NARRATIVE: CASE EVENT DATE: 20240101
